FAERS Safety Report 20311717 (Version 1)
Quarter: 2022Q1

REPORT INFORMATION
  Report Type: Spontaneous
  Country: DK (occurrence: DK)
  Receive Date: 20220108
  Receipt Date: 20220108
  Transmission Date: 20220423
  Serious: Yes (Death)
  Sender: FDA-Public Use
  Company Number: None

PATIENT
  Age: 79 Year
  Sex: Male
  Weight: 72 kg

DRUGS (10)
  1. KEYTRUDA [Suspect]
     Active Substance: PEMBROLIZUMAB
     Indication: Metastatic squamous cell carcinoma
     Dosage: UNK, DOSAGE: 280 MG (4 MG/KG) DOSE INTERVAL UNKNOWN, STRENGTH: 25 MG/ML
     Route: 042
     Dates: start: 20210818, end: 20211202
  2. SERTRALINE [Concomitant]
     Active Substance: SERTRALINE HYDROCHLORIDE
     Indication: Depression
     Dosage: UNK
     Dates: start: 20211014
  3. UNIKALK FORTE [Concomitant]
     Indication: Mineral supplementation
     Dosage: UNK
     Dates: start: 20210319
  4. PREDNISOLONE [Concomitant]
     Active Substance: PREDNISOLONE
     Indication: Adrenocortical steroid therapy
     Dosage: UNK
     Dates: start: 20210302
  5. MAGNESIUM HYDROXIDE [Concomitant]
     Active Substance: MAGNESIUM HYDROXIDE
     Indication: Constipation
     Dosage: UNK
     Dates: start: 20210330
  6. EZETIMIBE [Concomitant]
     Active Substance: EZETIMIBE
     Indication: Hypercholesterolaemia
     Dosage: UNK
     Dates: start: 20160429
  7. OMNISTAD [Concomitant]
     Indication: Dysuria
     Dosage: UNK
     Dates: start: 20140519
  8. FINASTERIDE [Concomitant]
     Active Substance: FINASTERIDE
     Indication: Prostatomegaly
     Dosage: UNK
     Dates: start: 20140210
  9. ASPIRIN [Concomitant]
     Active Substance: ASPIRIN
     Indication: Anticoagulant therapy
     Dosage: UNK
     Dates: start: 20140327
  10. UMECLIDINIUM BROMIDE\VILANTEROL TRIFENATATE [Concomitant]
     Active Substance: UMECLIDINIUM BROMIDE\VILANTEROL TRIFENATATE
     Indication: Chronic obstructive pulmonary disease
     Dosage: UNK
     Dates: start: 20181204

REACTIONS (9)
  - Hypotension [Unknown]
  - Cardiogenic shock [Fatal]
  - Oliguria [Unknown]
  - Myocarditis [Fatal]
  - Toxicity to various agents [Fatal]
  - Dyspnoea [Unknown]
  - Cardiac arrest [Fatal]
  - Acute kidney injury [Unknown]
  - Cardiac failure [Fatal]

NARRATIVE: CASE EVENT DATE: 20211201
